FAERS Safety Report 6690309-3 (Version None)
Quarter: 2010Q2

REPORT INFORMATION
  Report Type: 
  Country: None (occurrence: None)
  Receive Date: 20100421
  Receipt Date: 20100331
  Transmission Date: 20101027
  Serious: Yes (Disabling, Other)
  Sender: FDA-Public Use
  Company Number: PHEH2009US02599

PATIENT
  Age: 50 Year
  Sex: Male

DRUGS (1)
  1. RITALIN [Suspect]
     Dosage: UNK
     Dates: start: 19650101, end: 19750101

REACTIONS (8)
  - BIPOLAR DISORDER [None]
  - DISABILITY [None]
  - FEELING ABNORMAL [None]
  - HYPERTENSION [None]
  - LEARNING DISABILITY [None]
  - MENTAL DISORDER [None]
  - MOOD SWINGS [None]
  - SUICIDAL BEHAVIOUR [None]
